FAERS Safety Report 14002941 (Version 1)
Quarter: 2017Q3

REPORT INFORMATION
  Report Type: Report from Study
  Country: None (occurrence: ES)
  Receive Date: 20170922
  Receipt Date: 20170922
  Transmission Date: 20171128
  Serious: Yes (Death, Hospitalization, Other)
  Sender: FDA-Public Use
  Company Number: ES-ABBVIE-17K-144-2106955-00

PATIENT
  Age: 74 Year
  Sex: Female

DRUGS (1)
  1. DUODOPA [Suspect]
     Active Substance: CARBIDOPA\LEVODOPA
     Indication: PARKINSON^S DISEASE
     Route: 050
     Dates: start: 20130701, end: 201708

REACTIONS (9)
  - Pyrexia [Fatal]
  - Daydreaming [Unknown]
  - Hypophagia [Unknown]
  - Parkinson^s disease [Fatal]
  - Decreased appetite [Fatal]
  - Cerebrovascular accident [Fatal]
  - Abnormal behaviour [Not Recovered/Not Resolved]
  - Fear [Unknown]
  - General physical health deterioration [Not Recovered/Not Resolved]

NARRATIVE: CASE EVENT DATE: 2017
